FAERS Safety Report 4402026-0 (Version None)
Quarter: 2004Q3

REPORT INFORMATION
  Report Type: 
  Country: None (occurrence: None)
  Receive Date: 20040720
  Receipt Date: 20040521
  Transmission Date: 20050211
  Serious: Yes (Hospitalization)
  Sender: FDA-Public Use
  Company Number: US-BRISTOL-MYERS SQUIBB COMPANY-12593281

PATIENT
  Age: 41 Year
  Sex: Female
  Weight: 57 kg

DRUGS (1)
  1. ERBITUX [Suspect]
     Indication: COLON CANCER
     Dosage: 26APR04=LOADING DOSE; 12MAY04 AND 18MAY04: 250MG/M2
     Route: 042
     Dates: start: 20040426, end: 20040426

REACTIONS (4)
  - DERMATITIS ACNEIFORM [None]
  - HYPERBILIRUBINAEMIA [None]
  - PNEUMONIA [None]
  - VOMITING [None]
